FAERS Safety Report 5067565-0 (Version None)
Quarter: 2006Q3

REPORT INFORMATION
  Report Type: 
  Country: None (occurrence: None)
  Receive Date: 20060717
  Receipt Date: 20050928
  Transmission Date: 20061208
  Serious: Yes (Hospitalization)
  Sender: FDA-Public Use
  Company Number: K200501266

PATIENT
  Age: 33 Year
  Sex: Female
  Weight: 49.9 kg

DRUGS (2)
  1. LEVOXYL [Suspect]
     Indication: HYPOTHYROIDISM
     Dosage: SEE IMAGE
     Route: 048
     Dates: start: 20020101, end: 20050601
  2. LEVOXYL [Suspect]
     Indication: HYPOTHYROIDISM
     Dosage: SEE IMAGE
     Route: 048
     Dates: start: 20050601

REACTIONS (10)
  - DIZZINESS [None]
  - DYSPNOEA [None]
  - HEART RATE INCREASED [None]
  - HYPERSENSITIVITY [None]
  - PALPITATIONS [None]
  - PRURITUS [None]
  - SKIN DISCOLOURATION [None]
  - SNEEZING [None]
  - SWELLING FACE [None]
  - WHEEZING [None]
